FAERS Safety Report 8790786 (Version 1)
Quarter: 2012Q4

REPORT INFORMATION
  Report Type: Spontaneous
  Country: US (occurrence: None)
  Receive Date: 20120906
  Receipt Date: 20120906
  Transmission Date: 20130627
  Serious: Yes (Hospitalization)
  Sender: FDA-Public Use
  Company Number: 091216-000083

PATIENT
  Age: 35 Year
  Sex: Female

DRUGS (2)
  1. PROACTIV RENEWING CLEANSER [Suspect]
     Indication: ACNE
     Dosage: Once daily dermal
     Dates: start: 200910
  2. PROACTIV REPAIRING [Suspect]

REACTIONS (1)
  - Urticaria [None]
